FAERS Safety Report 8555351-6 (Version None)
Quarter: 2012Q3

REPORT INFORMATION
  Report Type: 
  Country: None (occurrence: None)
  Receive Date: 20120731
  Receipt Date: 20110919
  Transmission Date: 20120928
  Serious: Yes (Hospitalization, Other)
  Sender: FDA-Public Use
  Company Number: US-ASTRAZENECA-2011SE32313

PATIENT
  Age: 27 Year
  Sex: Female

DRUGS (5)
  1. SEROQUEL [Suspect]
     Route: 048
  2. SEROQUEL [Suspect]
     Indication: DEPRESSION
     Route: 048
     Dates: start: 20090327, end: 20110401
  3. SEROQUEL [Suspect]
     Route: 048
  4. SEROQUEL [Suspect]
     Indication: BIPOLAR DISORDER
     Route: 048
     Dates: start: 20090327, end: 20110401
  5. DEXADRINE [Concomitant]
     Indication: SEDATION
     Route: 048
     Dates: start: 20100201, end: 20110317

REACTIONS (6)
  - MIDDLE INSOMNIA [None]
  - TRICUSPID VALVE INCOMPETENCE [None]
  - TACHYCARDIA [None]
  - MITRAL VALVE INCOMPETENCE [None]
  - PALPITATIONS [None]
  - PULMONARY VALVE INCOMPETENCE [None]
